FAERS Safety Report 5948164-2 (Version None)
Quarter: 2008Q4

REPORT INFORMATION
  Report Type: 
  Country: None (occurrence: None)
  Receive Date: 20081107
  Receipt Date: 20081103
  Transmission Date: 20090506
  Serious: Yes (Death)
  Sender: FDA-Public Use
  Company Number: ENTC2008-0322

PATIENT
  Age: 72 Year
  Sex: Male

DRUGS (1)
  1. STALEVO 100 [Suspect]
     Dosage: 150/37.5/200 TWICE PER DAY ORAL
     Route: 048
     Dates: start: 20080601

REACTIONS (4)
  - CEREBRAL ISCHAEMIA [None]
  - DYSPHAGIA [None]
  - FOREIGN BODY ASPIRATION [None]
  - UPPER AIRWAY OBSTRUCTION [None]
